FAERS Safety Report 9963902 (Version 2)
Quarter: 2014Q2

REPORT INFORMATION
  Report Type: Report from Study
  Country: BR (occurrence: BR)
  Receive Date: 20140305
  Receipt Date: 20140402
  Transmission Date: 20141212
  Serious: Yes (Other)
  Sender: FDA-Public Use
  Company Number: PHHY2014BR025251

PATIENT
  Sex: Female
  Weight: 76 kg

DRUGS (6)
  1. DIOVAN HCT [Suspect]
     Indication: HYPERTENSION
     Dosage: 0.5 DF, UNK
  2. DIOVAN HCT [Suspect]
     Dosage: 1 DF, (160 MG VALS/12.5 MG HCTZ) IN THE MORNING
     Route: 048
  3. ATENOLOL [Suspect]
     Dosage: UNK UKN, UNK
  4. ATENOLOL [Suspect]
     Dosage: 0.5 DF, UNK
  5. SYNTHROID [Concomitant]
     Indication: HYPERTHYROIDISM
     Dosage: 125 MG, UNK
  6. ASPIRINA PREVENT [Concomitant]
     Indication: BLOOD DISORDER
     Dosage: 100 MG, UNK

REACTIONS (6)
  - Thrombosis [Recovering/Resolving]
  - Blood pressure increased [Recovering/Resolving]
  - Asthenia [Recovering/Resolving]
  - Hypotension [Recovering/Resolving]
  - Drug ineffective [Unknown]
  - Wrong technique in drug usage process [Recovering/Resolving]
